FAERS Safety Report 4566348-5 (Version None)
Quarter: 2005Q1

REPORT INFORMATION
  Report Type: 
  Country: None (occurrence: None)
  Receive Date: 20050201
  Receipt Date: 20050127
  Transmission Date: 20050727
  Serious: Yes (Other)
  Sender: FDA-Public Use
  Company Number: 200510683US

PATIENT
  Age: 36 Year
  Sex: Female

DRUGS (4)
  1. ARAVA [Suspect]
     Indication: RHEUMATOID ARTHRITIS
     Route: 048
     Dates: start: 20010401, end: 20041213
  2. ENBREL [Concomitant]
     Dosage: DOSE: NOT PROVIDED
  3. PAXIL [Concomitant]
     Dosage: DOSE: NOT PROVIDED
  4. FOLIC ACID [Concomitant]
     Dosage: DOSE: NOT PROVIDED

REACTIONS (3)
  - ABORTION SPONTANEOUS [None]
  - DRUG EXPOSURE DURING PREGNANCY [None]
  - PREGNANCY [None]
